FAERS Safety Report 17118471 (Version 1)
Quarter: 2019Q4

REPORT INFORMATION
  Report Type: Spontaneous
  Country: US (occurrence: US)
  Receive Date: 20191205
  Receipt Date: 20191205
  Transmission Date: 20200122
  Serious: Yes (Other)
  Sender: FDA-Public Use
  Company Number: US-BAXTER-2019BAX024311

PATIENT
  Age: 17 Year
  Sex: Male

DRUGS (5)
  1. BENZATROPINE [Suspect]
     Active Substance: BENZTROPINE
     Indication: PROPHYLAXIS
     Route: 065
  2. LEVOTHYROXINE. [Concomitant]
     Active Substance: LEVOTHYROXINE
     Indication: HYPOTHYROIDISM
     Route: 065
  3. LITHIUM. [Suspect]
     Active Substance: LITHIUM
     Indication: BIPOLAR DISORDER
     Route: 065
  4. BENZATROPINE [Suspect]
     Active Substance: BENZTROPINE
     Indication: PROPHYLAXIS
  5. HALOPERIDOL LACTATE INJECTION, USP [Suspect]
     Active Substance: HALOPERIDOL LACTATE
     Indication: BIPOLAR DISORDER
     Dosage: OVER THE PAST 9 MONTHS
     Route: 065

REACTIONS (3)
  - Drug interaction [Unknown]
  - Urinary retention [Recovered/Resolved]
  - Hyperprolactinaemia [Recovered/Resolved]
